FAERS Safety Report 6851868-0 (Version None)
Quarter: 2010Q3

REPORT INFORMATION
  Report Type: 
  Country: None (occurrence: None)
  Receive Date: 20100717
  Receipt Date: 20071031
  Transmission Date: 20110219
  Serious: No
  Sender: FDA-Public Use
  Company Number: US-PFIZER INC-2007092459

PATIENT
  Sex: Female
  Weight: 47.727 kg

DRUGS (7)
  1. CHANTIX [Suspect]
     Indication: SMOKING CESSATION THERAPY
     Dates: start: 20071022
  2. ATENOLOL [Concomitant]
     Indication: HYPERTENSION
  3. ACETYLSALICYLIC ACID [Concomitant]
  4. TRIMIPRAMINE [Concomitant]
  5. ALBUTEROL [Concomitant]
     Indication: EMPHYSEMA
     Dosage: NA EVERY 6 HOURS
     Route: 055
  6. ADVAIR DISKUS 100/50 [Concomitant]
     Indication: EMPHYSEMA
  7. VITAMINS [Concomitant]

REACTIONS (3)
  - HUNGER [None]
  - NAUSEA [None]
  - VOMITING [None]
